FAERS Safety Report 9692298 (Version 1)
Quarter: 2013Q4

REPORT INFORMATION
  Report Type: Spontaneous
  Country: PL (occurrence: PL)
  Receive Date: 20131118
  Receipt Date: 20131118
  Transmission Date: 20140711
  Serious: Yes (Hospitalization)
  Sender: FDA-Public Use
  Company Number: PL-ACCORD-020352

PATIENT
  Age: 45 Year
  Sex: Male

DRUGS (4)
  1. TRAMADOL [Suspect]
     Indication: PAIN
  2. KETOPROFEN [Suspect]
     Indication: ABDOMINAL PAIN
     Dosage: ON AN AD HOC BASES
  3. GEMCITABINE [Suspect]
     Indication: PANCREATIC CARCINOMA METASTATIC
     Dates: start: 201110
  4. ERLOTINIB [Suspect]
     Indication: NEOPLASM MALIGNANT

REACTIONS (6)
  - Psychotic disorder [Recovering/Resolving]
  - Asthenia [Unknown]
  - Decreased appetite [Recovered/Resolved]
  - Nausea [Recovered/Resolved]
  - Vomiting [Recovered/Resolved]
  - Constipation [Recovered/Resolved]
